FAERS Safety Report 6371114-4 (Version None)
Quarter: 2009Q3

REPORT INFORMATION
  Report Type: 
  Country: None (occurrence: None)
  Receive Date: 20090923
  Receipt Date: 20090916
  Transmission Date: 20100115
  Serious: Yes (Hospitalization)
  Sender: FDA-Public Use
  Company Number: US-BAYER-200914405BCC

PATIENT
  Age: 69 Year
  Sex: Male
  Weight: 91 kg

DRUGS (8)
  1. ALEVE [Suspect]
     Indication: BACK PAIN
     Dosage: TOTAL DAILY DOSE: 220 MG  UNIT DOSE: 220 MG
     Route: 048
     Dates: start: 20020101, end: 20020101
  2. ALEVE [Suspect]
     Dosage: TOTAL DAILY DOSE: 220 MG  UNIT DOSE: 220 MG
     Route: 048
     Dates: start: 20090901, end: 20090901
  3. ALEVE [Suspect]
     Dosage: TOTAL DAILY DOSE: 220 MG  UNIT DOSE: 220 MG
     Route: 048
     Dates: start: 20090914, end: 20090914
  4. DIPHENHYDRAMINE HYDROCHLORIDE [Concomitant]
     Route: 065
  5. UNKNOWN DRUG [Concomitant]
     Indication: HYPERTENSION
     Route: 065
  6. PROZAC [Concomitant]
     Route: 065
  7. TAGAMET [Concomitant]
     Route: 065
  8. UNKNOWN BABY ASPIRIN [Concomitant]
     Route: 065

REACTIONS (1)
  - DIZZINESS [None]
